FAERS Safety Report 24931911 (Version 4)
Quarter: 2025Q3

REPORT INFORMATION
  Report Type: Report from Study
  Country: US (occurrence: US)
  Receive Date: 20250205
  Receipt Date: 20250718
  Transmission Date: 20251021
  Serious: No
  Sender: SUNOVION
  Company Number: US-SUMITOMO PHARMA SWITZERLAND GMBH-2025SPA001063

PATIENT

DRUGS (3)
  1. ORGOVYX [Suspect]
     Active Substance: RELUGOLIX
     Indication: Prostate cancer
     Route: 048
  2. ORGOVYX [Suspect]
     Active Substance: RELUGOLIX
     Dosage: 120 MG, QD
     Route: 048
     Dates: start: 20250115
  3. ABIRATERONE ACETATE [Concomitant]
     Active Substance: ABIRATERONE ACETATE
     Route: 065

REACTIONS (8)
  - Thyroid function test abnormal [Unknown]
  - Palpitations [Unknown]
  - Nervousness [Unknown]
  - Blood pressure increased [Unknown]
  - Depressed mood [Unknown]
  - Dizziness [Unknown]
  - Blood glucose increased [Unknown]
  - Hot flush [Unknown]
